FAERS Safety Report 24020565 (Version 1)
Quarter: 2024Q2

REPORT INFORMATION
  Report Type: Spontaneous
  Country: US (occurrence: None)
  Receive Date: 20240627
  Receipt Date: 20240627
  Transmission Date: 20240716
  Serious: Yes (Hospitalization)
  Sender: FDA-Public Use
  Company Number: None

PATIENT
  Age: 70 Year
  Sex: Female
  Weight: 39.01 kg

DRUGS (1)
  1. PROLIA [Suspect]
     Active Substance: DENOSUMAB
     Indication: Osteoporosis
     Dates: start: 2019, end: 2023

REACTIONS (6)
  - Tooth injury [None]
  - Osteonecrosis of jaw [None]
  - Emotional disorder [None]
  - Malaise [None]
  - Eating disorder [None]
  - Gait disturbance [None]

NARRATIVE: CASE EVENT DATE: 20230901
